FAERS Safety Report 5469392-9 (Version None)
Quarter: 2007Q3

REPORT INFORMATION
  Report Type: 
  Country: None (occurrence: None)
  Receive Date: 20070927
  Receipt Date: 20070919
  Transmission Date: 20080115
  Serious: Yes (Hospitalization)
  Sender: FDA-Public Use
  Company Number: US-ROCHE-519503

PATIENT
  Age: 47 Year
  Sex: Female
  Weight: 81.6 kg

DRUGS (5)
  1. BONIVA [Suspect]
     Indication: OSTEOPOROSIS
     Route: 048
     Dates: start: 20051001
  2. TRICOR [Concomitant]
  3. LIPITOR [Concomitant]
  4. METFORMIN [Concomitant]
  5. GLYBURIDE [Concomitant]

REACTIONS (2)
  - ABDOMINAL INFECTION [None]
  - RENAL FAILURE [None]
